FAERS Safety Report 4561458-0 (Version None)
Quarter: 2005Q1

REPORT INFORMATION
  Report Type: 
  Country: None (occurrence: None)
  Receive Date: 20050121
  Receipt Date: 20050103
  Transmission Date: 20050727
  Serious: Yes (Other)
  Sender: FDA-Public Use
  Company Number: US_0411108032

PATIENT
  Age: 74 Year
  Sex: Male

DRUGS (1)
  1. FORTEO [Suspect]
     Dates: start: 20031101

REACTIONS (6)
  - ASEPTIC NECROSIS BONE [None]
  - BONE DISORDER [None]
  - CONDITION AGGRAVATED [None]
  - CONTUSION [None]
  - JOINT HYPEREXTENSION [None]
  - PAIN IN EXTREMITY [None]
